FAERS Safety Report 11266412 (Version 1)
Quarter: 2015Q3

REPORT INFORMATION
  Report Type: Spontaneous
  Country: US (occurrence: US)
  Receive Date: 20150713
  Receipt Date: 20150713
  Transmission Date: 20151125
  Serious: Yes (Hospitalization)
  Sender: FDA-Public Use
  Company Number: US-PFIZER INC-2015227408

PATIENT
  Sex: Male
  Weight: 73 kg

DRUGS (2)
  1. FLUCONAZOLE. [Suspect]
     Active Substance: FLUCONAZOLE
     Dosage: 400 MG, 2X/DAY (PRESCRIBED 200MG IN THE MORNING AND 200MG IN THE EVENING)
  2. FLUCONAZOLE. [Suspect]
     Active Substance: FLUCONAZOLE
     Indication: COCCIDIOIDOMYCOSIS
     Dosage: 200 MG, 4X/DAY (EVERY SIX HOURS)
     Dates: start: 2008

REACTIONS (7)
  - Nasal dryness [Unknown]
  - Intentional product misuse [Unknown]
  - Abscess neck [Unknown]
  - Urticaria [Unknown]
  - Burning sensation [Not Recovered/Not Resolved]
  - Dry skin [Not Recovered/Not Resolved]
  - Condition aggravated [Unknown]

NARRATIVE: CASE EVENT DATE: 2012
